FAERS Safety Report 25032940 (Version 1)
Quarter: 2025Q1

REPORT INFORMATION
  Report Type: Spontaneous
  Country: CA (occurrence: CA)
  Receive Date: 20250303
  Receipt Date: 20250303
  Transmission Date: 20250409
  Serious: Yes (Hospitalization, Other)
  Sender: CSL BEHRING
  Company Number: CA-BEH-2025197201

PATIENT
  Age: 3 Decade
  Sex: Male

DRUGS (46)
  1. HUMAN IMMUNOGLOBULIN G [Suspect]
     Active Substance: HUMAN IMMUNOGLOBULIN G
     Indication: Guillain-Barre syndrome
     Route: 065
  2. HUMAN IMMUNOGLOBULIN G [Suspect]
     Active Substance: HUMAN IMMUNOGLOBULIN G
     Route: 065
  3. ACETAMINOPHEN [Suspect]
     Active Substance: ACETAMINOPHEN
     Indication: Neuralgia
     Route: 062
  4. ACETAMINOPHEN [Suspect]
     Active Substance: ACETAMINOPHEN
     Route: 065
  5. DICLOFENAC SODIUM [Suspect]
     Active Substance: DICLOFENAC SODIUM
     Indication: Neuralgia
     Route: 065
  6. FENTANYL [Suspect]
     Active Substance: FENTANYL
     Indication: Neuralgia
     Dosage: 25.0 MG, QH
     Route: 062
  7. FENTANYL [Suspect]
     Active Substance: FENTANYL
     Dosage: 37.5 MG, QH
     Route: 062
  8. FENTANYL [Suspect]
     Active Substance: FENTANYL
     Route: 062
  9. FENTANYL [Suspect]
     Active Substance: FENTANYL
     Route: 062
  10. GABAPENTIN [Suspect]
     Active Substance: GABAPENTIN
     Indication: Neuralgia
     Route: 065
  11. GABAPENTIN [Suspect]
     Active Substance: GABAPENTIN
     Route: 065
  12. GABAPENTIN [Suspect]
     Active Substance: GABAPENTIN
     Route: 065
  13. GABAPENTIN [Suspect]
     Active Substance: GABAPENTIN
     Route: 065
  14. GABAPENTIN [Suspect]
     Active Substance: GABAPENTIN
     Route: 048
  15. GABAPENTIN [Suspect]
     Active Substance: GABAPENTIN
     Route: 065
  16. GABAPENTIN [Suspect]
     Active Substance: GABAPENTIN
     Route: 065
  17. GABAPENTIN [Suspect]
     Active Substance: GABAPENTIN
     Route: 065
  18. GABAPENTIN [Suspect]
     Active Substance: GABAPENTIN
     Route: 065
  19. GABAPENTIN [Suspect]
     Active Substance: GABAPENTIN
     Route: 065
  20. GABAPENTIN [Suspect]
     Active Substance: GABAPENTIN
     Route: 048
  21. GABAPENTIN [Suspect]
     Active Substance: GABAPENTIN
     Route: 048
  22. HYDROMORPHONE [Suspect]
     Active Substance: HYDROMORPHONE
     Indication: Neuralgia
     Route: 048
  23. HYDROMORPHONE [Suspect]
     Active Substance: HYDROMORPHONE
     Route: 048
  24. HYDROMORPHONE HYDROCHLORIDE [Suspect]
     Active Substance: HYDROMORPHONE HYDROCHLORIDE
     Indication: Neuralgia
     Route: 030
  25. HYDROMORPHONE HYDROCHLORIDE [Suspect]
     Active Substance: HYDROMORPHONE HYDROCHLORIDE
     Route: 030
  26. HYDROMORPHONE HYDROCHLORIDE [Suspect]
     Active Substance: HYDROMORPHONE HYDROCHLORIDE
     Route: 065
  27. HYDROMORPHONE HYDROCHLORIDE [Suspect]
     Active Substance: HYDROMORPHONE HYDROCHLORIDE
     Route: 065
  28. IBUPROFEN [Suspect]
     Active Substance: IBUPROFEN
     Indication: Neuralgia
     Route: 042
  29. KETAMINE HYDROCHLORIDE [Suspect]
     Active Substance: KETAMINE HYDROCHLORIDE
     Indication: Neuralgia
     Route: 042
  30. KETAMINE HYDROCHLORIDE [Suspect]
     Active Substance: KETAMINE HYDROCHLORIDE
     Route: 048
  31. LIDOCAINE [Suspect]
     Active Substance: LIDOCAINE
     Indication: Neuralgia
     Route: 065
  32. LIDOCAINE [Suspect]
     Active Substance: LIDOCAINE
     Route: 065
  33. NABILONE [Suspect]
     Active Substance: NABILONE
     Indication: Neuralgia
     Route: 042
  34. NABILONE [Suspect]
     Active Substance: NABILONE
     Route: 065
  35. NABILONE [Suspect]
     Active Substance: NABILONE
     Route: 042
  36. NABILONE [Suspect]
     Active Substance: NABILONE
     Route: 065
  37. PHENYTOIN [Suspect]
     Active Substance: PHENYTOIN
     Indication: Neuralgia
     Route: 065
  38. VENLAFAXINE HYDROCHLORIDE [Suspect]
     Active Substance: VENLAFAXINE HYDROCHLORIDE
     Indication: Neuralgia
     Route: 065
  39. ZOPICLONE [Suspect]
     Active Substance: ZOPICLONE
     Indication: Neuralgia
     Route: 065
  40. OLANZAPINE [Suspect]
     Active Substance: OLANZAPINE
     Indication: Product used for unknown indication
     Route: 065
  41. OLANZAPINE [Suspect]
     Active Substance: OLANZAPINE
     Route: 065
  42. OLANZAPINE [Suspect]
     Active Substance: OLANZAPINE
     Route: 065
  43. OLANZAPINE [Suspect]
     Active Substance: OLANZAPINE
     Route: 065
  44. ACETAMINOPHEN [Suspect]
     Active Substance: ACETAMINOPHEN
     Indication: Neuralgia
     Route: 065
  45. ACETAMINOPHEN [Suspect]
     Active Substance: ACETAMINOPHEN
     Route: 062
  46. CHILDRENS IBUPROFEN [Suspect]
     Active Substance: IBUPROFEN
     Indication: Neuralgia
     Route: 042

REACTIONS (2)
  - Drug ineffective [Unknown]
  - Inspiratory capacity decreased [Unknown]
